FAERS Safety Report 22052627 (Version 1)
Quarter: 2023Q1

REPORT INFORMATION
  Report Type: Report from Study
  Country: FR (occurrence: FR)
  Receive Date: 20230302
  Receipt Date: 20230302
  Transmission Date: 20230418
  Serious: Yes (Hospitalization, Other)
  Sender: FDA-Public Use
  Company Number: FR-BRISTOL-MYERS SQUIBB COMPANY-2023-027207

PATIENT
  Age: 60 Year
  Sex: Male
  Weight: 70 kg

DRUGS (21)
  1. ROMIDEPSIN [Suspect]
     Active Substance: ROMIDEPSIN
     Indication: Cutaneous T-cell lymphoma
     Dates: start: 20210520
  2. ROMIDEPSIN [Suspect]
     Active Substance: ROMIDEPSIN
     Dosage: C7D1
     Dates: start: 20211129
  3. ROMIDEPSIN [Suspect]
     Active Substance: ROMIDEPSIN
     Dosage: C7D8
     Dates: start: 20211203
  4. ROMIDEPSIN [Suspect]
     Active Substance: ROMIDEPSIN
     Dates: start: 20210111
  5. ROMIDEPSIN [Suspect]
     Active Substance: ROMIDEPSIN
     Dosage: C7D1
     Dates: end: 20221109
  6. BENDAMUSTINE [Suspect]
     Active Substance: BENDAMUSTINE
     Indication: Cutaneous T-cell lymphoma
     Dates: start: 20220803, end: 20221109
  7. ONDANSETRON [Concomitant]
     Active Substance: ONDANSETRON
     Indication: Prophylaxis
  8. EMEND [Concomitant]
     Active Substance: APREPITANT
     Indication: Prophylaxis
  9. DICLOFENAC [Concomitant]
     Active Substance: DICLOFENAC
     Indication: Product used for unknown indication
     Dosage: 75 MG, TWICE A DAY (MORNING AND EVENING)
  10. ACETAMINOPHEN\OPIUM [Concomitant]
     Active Substance: ACETAMINOPHEN\OPIUM
     Indication: Pain
     Dosage: 4 TABLETS PER DAY
  11. ESOMEPRAZOLE [Concomitant]
     Active Substance: ESOMEPRAZOLE
     Indication: Product used for unknown indication
     Dosage: 20MG IN THE EVENING
  12. AERIUS (DESLORATADINE) [Concomitant]
     Active Substance: DESLORATADINE
     Indication: Product used for unknown indication
  13. LEVOTHYROXINE [Concomitant]
     Active Substance: LEVOTHYROXINE
     Indication: Product used for unknown indication
  14. ESCITALOPRAM [Concomitant]
     Active Substance: ESCITALOPRAM OXALATE
     Indication: Product used for unknown indication
  15. METHOTREXATE SODIUM [Concomitant]
     Active Substance: METHOTREXATE SODIUM
     Indication: Product used for unknown indication
     Dosage: 1 INJECTION OF 15MG PER WEEK ON WEDNESDAY (SUSPENDED FOR THE MOMENT).
  16. FOLIC ACID [Concomitant]
     Active Substance: FOLIC ACID
     Indication: Product used for unknown indication
     Dosage: 5MG, 2 TABLETS PER WEEK ON FRIDAY
  17. ACETAMINOPHEN [Concomitant]
     Active Substance: ACETAMINOPHEN
     Indication: Pain
     Dosage: 1000MG EFFERVESCENT, 1 TABLET IF PAIN.
  18. MECHLORETHAMINE HYDROCHLORIDE [Concomitant]
     Active Substance: MECHLORETHAMINE HYDROCHLORIDE
     Indication: Product used for unknown indication
     Dosage: LEDAGA GEL IN ALTERNATION WITH CLARELUX
  19. CLOBETASOL PROPIONATE [Concomitant]
     Active Substance: CLOBETASOL PROPIONATE
     Indication: Product used for unknown indication
     Dosage: LEDAGA GEL IN ALTERNATION WITH CLARELUX
  20. CLOBEX [CLOBETASOL PROPIONATE] [Concomitant]
     Indication: Product used for unknown indication
     Dosage: MAINTENANCE SHAMPOO
  21. ZYRTEC [Concomitant]
     Active Substance: CETIRIZINE HYDROCHLORIDE
     Indication: Product used for unknown indication
     Dates: start: 20221010

REACTIONS (2)
  - Anaphylactoid reaction [Recovered/Resolved]
  - Lymphopenia [Unknown]

NARRATIVE: CASE EVENT DATE: 20221109
